FAERS Safety Report 7057938-9 (Version None)
Quarter: 2010Q4

REPORT INFORMATION
  Report Type: 
  Country: None (occurrence: None)
  Receive Date: 20101022
  Receipt Date: 20101012
  Transmission Date: 20110411
  Serious: Yes (Hospitalization, Other)
  Sender: FDA-Public Use
  Company Number: US-PFIZER INC-2008047306

PATIENT
  Sex: Female
  Weight: 59 kg

DRUGS (17)
  1. CHANTIX [Interacting]
     Indication: SMOKING CESSATION THERAPY
     Dosage: 0.5 MG, 1X/DAY
     Route: 048
     Dates: start: 20071214, end: 20071222
  2. CHANTIX [Interacting]
     Dosage: UNK
     Route: 048
     Dates: start: 20080301, end: 20080401
  3. CHANTIX [Interacting]
     Dosage: 0.5 MG, UNK DAILY
     Route: 048
     Dates: start: 20101007, end: 20101001
  4. CHANTIX [Interacting]
     Dosage: 1 MG, 2X/DAY
     Route: 048
     Dates: start: 20101001
  5. TRILEPTAL [Suspect]
     Indication: CONVULSION
     Dosage: 300 MG, 3X/DAY
  6. KLONOPIN [Interacting]
     Indication: CONVULSION
     Dosage: UNK
  7. CELEXA [Concomitant]
  8. KEPPRA [Concomitant]
     Indication: CONVULSION
     Dosage: 500 MG, 4X/DAY
  9. ACTIVIA [Concomitant]
     Indication: IRRITABLE BOWEL SYNDROME
  10. REMERON [Concomitant]
  11. PRILOSEC [Concomitant]
  12. CYMBALTA [Concomitant]
  13. DETROL LA [Concomitant]
     Dosage: UNK
  14. AMBIEN [Concomitant]
     Dosage: UNK
  15. OXYCODONE [Concomitant]
     Dosage: UNK
  16. ATIVAN [Concomitant]
     Indication: PANIC ATTACK
     Dosage: UNK
  17. NASONEX [Concomitant]
     Indication: HYPERSENSITIVITY
     Dosage: UNK

REACTIONS (25)
  - ABDOMINAL PAIN [None]
  - CERVICAL SPINAL STENOSIS [None]
  - CLAUSTROPHOBIA [None]
  - CONVULSION [None]
  - CRYING [None]
  - DECREASED APPETITE [None]
  - DEPRESSED MOOD [None]
  - DRUG INTERACTION [None]
  - EPILEPSY [None]
  - FALL [None]
  - FEAR [None]
  - FEELING ABNORMAL [None]
  - GASTROOESOPHAGEAL REFLUX DISEASE [None]
  - HEADACHE [None]
  - HUNGER [None]
  - INTERVERTEBRAL DISC DISORDER [None]
  - JOINT SPRAIN [None]
  - MALAISE [None]
  - NAUSEA [None]
  - PATELLA FRACTURE [None]
  - SPINAL OSTEOARTHRITIS [None]
  - SURGERY [None]
  - VOMITING [None]
  - WEIGHT DECREASED [None]
  - WEIGHT INCREASED [None]
